FAERS Safety Report 12201245 (Version 1)
Quarter: 2016Q1

REPORT INFORMATION
  Report Type: Spontaneous
  Country: US (occurrence: US)
  Receive Date: 20160322
  Receipt Date: 20160322
  Transmission Date: 20160526
  Serious: No
  Sender: FDA-Public Use
  Company Number: US-SA-2015SA071116

PATIENT
  Age: 82 Year
  Sex: Female

DRUGS (1)
  1. NASACORT ALLERGY 24HR [Suspect]
     Active Substance: TRIAMCINOLONE ACETONIDE
     Indication: HYPERSENSITIVITY
     Dosage: PATIENT TAKING FREQUENCY OF  DOSE 2 SPRAYS/TID, PATIENT STARTED PRODUCT FEW DAYS AGO
     Route: 045
     Dates: end: 20150519

REACTIONS (3)
  - Extra dose administered [Unknown]
  - Drug ineffective [Unknown]
  - Vomiting [Recovered/Resolved]
